FAERS Safety Report 4419860-3 (Version None)
Quarter: 2004Q3

REPORT INFORMATION
  Report Type: 
  Country: None (occurrence: None)
  Receive Date: 20040809
  Receipt Date: 20040312
  Transmission Date: 20050211
  Serious: No
  Sender: FDA-Public Use
  Company Number: US-GLAXOSMITHKLINE-A0502615A

PATIENT
  Age: 43 Year
  Sex: Male

DRUGS (2)
  1. PAXIL [Suspect]
     Indication: DRUG USE FOR UNKNOWN INDICATION
  2. MIRAPEX [Suspect]
     Indication: PARKINSON'S DISEASE
     Dosage: .75MG THREE TIMES PER DAY
     Route: 048
     Dates: start: 20010101

REACTIONS (3)
  - DRUG WITHDRAWAL SYNDROME [None]
  - OBSESSIVE-COMPULSIVE DISORDER [None]
  - SEXUAL DYSFUNCTION [None]
